FAERS Safety Report 16777942 (Version 1)
Quarter: 2019Q3

REPORT INFORMATION
  Report Type: Report from Study
  Country: US (occurrence: US)
  Receive Date: 20190905
  Receipt Date: 20190905
  Transmission Date: 20191005
  Serious: Yes (Death)
  Sender: FDA-Public Use
  Company Number: US-GILEAD-2019-0426694

PATIENT
  Age: 96 Year
  Sex: Male

DRUGS (1)
  1. RANOLAZINE. [Suspect]
     Active Substance: RANOLAZINE
     Indication: ANGINA PECTORIS
     Dosage: 1 DOSAGE FORM, BID
     Route: 048
     Dates: start: 201504, end: 20190407

REACTIONS (2)
  - Pain [Fatal]
  - Multiple drug therapy [Fatal]
